FAERS Safety Report 6288299-0 (Version None)
Quarter: 2009Q3

REPORT INFORMATION
  Report Type: 
  Country: None (occurrence: None)
  Receive Date: 20090729
  Receipt Date: 20090723
  Transmission Date: 20100115
  Serious: Yes (Hospitalization)
  Sender: FDA-Public Use
  Company Number: AU-ASTRAZENECA-2009SE05656

PATIENT
  Age: 27133 Day
  Sex: Female

DRUGS (2)
  1. ATACAND [Suspect]
     Dosage: ONE DOSE UNSPECIFIED DAILY
     Route: 048
  2. VENLAFAXINE HYDROCHLORIDE [Suspect]
     Route: 048
     Dates: start: 20080214, end: 20080215

REACTIONS (6)
  - DIZZINESS [None]
  - HALLUCINATION [None]
  - HYPONATRAEMIA [None]
  - NAUSEA [None]
  - TINNITUS [None]
  - VISION BLURRED [None]
